FAERS Safety Report 4615840-3 (Version None)
Quarter: 2005Q2

REPORT INFORMATION
  Report Type: 
  Country: None (occurrence: None)
  Receive Date: 20050308
  Receipt Date: 20040505
  Transmission Date: 20051028
  Serious: Yes (Hospitalization)
  Sender: FDA-Public Use
  Company Number: 200417810BWH

PATIENT
  Age: 85 Year
  Sex: Female

DRUGS (1)
  1. CIPRO IV [Suspect]
     Dosage: 400 MG, TOTAL DAILY, INTRAVENOUS
     Route: 042
     Dates: start: 20040502

REACTIONS (4)
  - ERYTHEMA [None]
  - INJECTION SITE REACTION [None]
  - PRURITUS [None]
  - URTICARIA [None]
